FAERS Safety Report 18384709 (Version 1)
Quarter: 2020Q4

REPORT INFORMATION
  Report Type: Other
  Country: CA (occurrence: CA)
  Receive Date: 20201015
  Receipt Date: 20201015
  Transmission Date: 20210114
  Serious: Yes (Other)
  Sender: FDA-Public Use
  Company Number: CA-CELLTRION INC.-2020CA028678

PATIENT

DRUGS (9)
  1. METHYLPREDNISOLONE SODIUM SUCCINATE. [Concomitant]
     Active Substance: METHYLPREDNISOLONE SODIUM SUCCINATE
     Indication: PREMEDICATION
     Dosage: 100.0 MILLIGRAM
     Route: 042
  2. RITUXIMAB (UNKNOWN) [Suspect]
     Active Substance: RITUXIMAB
     Indication: ANTI-INTERFERON ANTIBODY POSITIVE
     Dosage: 580.0 MILLIGRAM 1 EVERY 4 WEEKS
     Route: 041
  3. RITUXIMAB (UNKNOWN) [Suspect]
     Active Substance: RITUXIMAB
     Dosage: UNK
     Route: 042
  4. LEVOTHYROXINE. [Concomitant]
     Active Substance: LEVOTHYROXINE
  5. LINEZOLID. [Concomitant]
     Active Substance: LINEZOLID
  6. TYLENOL [Concomitant]
     Active Substance: ACETAMINOPHEN
     Indication: PREMEDICATION
     Dosage: 650.0 MILLIGRAM
     Route: 048
  7. BENADRYL [Concomitant]
     Active Substance: DIPHENHYDRAMINE HYDROCHLORIDE
     Indication: PREMEDICATION
     Dosage: 50.0 MILLIGRAM
     Route: 048
  8. CLARITHROMYCIN. [Concomitant]
     Active Substance: CLARITHROMYCIN
  9. POTASSIUM [Concomitant]
     Active Substance: POTASSIUM

REACTIONS (4)
  - Intentional product use issue [Unknown]
  - Ill-defined disorder [Unknown]
  - Off label use [Unknown]
  - Mycobacterium avium complex infection [Unknown]
